FAERS Safety Report 5836986-8 (Version None)
Quarter: 2008Q3

REPORT INFORMATION
  Report Type: 
  Country: None (occurrence: None)
  Receive Date: 20080806
  Receipt Date: 20080613
  Transmission Date: 20090109
  Serious: Yes (Other)
  Sender: FDA-Public Use
  Company Number: WAES 0806USA02896

PATIENT
  Sex: Female

DRUGS (2)
  1. JANUMET [Suspect]
     Indication: TYPE 2 DIABETES MELLITUS
     Dosage: 500MG/50 MG/BID/PO
     Route: 048
     Dates: start: 20080417, end: 20080505
  2. METFORMIN HCL [Concomitant]

REACTIONS (1)
  - STEVENS-JOHNSON SYNDROME [None]
